FAERS Safety Report 14581300 (Version 1)
Quarter: 2018Q1

REPORT INFORMATION
  Report Type: Spontaneous
  Country: US (occurrence: US)
  Receive Date: 20180228
  Receipt Date: 20180228
  Transmission Date: 20180509
  Serious: Yes (Other)
  Sender: FDA-Public Use
  Company Number: PHEH2018US007734

PATIENT

DRUGS (4)
  1. FULVESTRANT. [Suspect]
     Active Substance: FULVESTRANT
     Indication: OVARIAN CANCER
     Dosage: 500 MG, Q2W
     Route: 030
  2. FULVESTRANT. [Suspect]
     Active Substance: FULVESTRANT
     Dosage: 500 MG, QMO
     Route: 030
  3. LUPRON [Suspect]
     Active Substance: LEUPROLIDE ACETATE
     Indication: OVARIAN CANCER
     Dosage: 3.75 MG, QMO(MONTHLY)
     Route: 065
     Dates: start: 201610
  4. LETROZOLE. [Suspect]
     Active Substance: LETROZOLE
     Indication: OVARIAN CANCER
     Dosage: 2.5 MG, QD
     Route: 065
     Dates: start: 201610

REACTIONS (8)
  - Pain [Unknown]
  - Product use in unapproved indication [Unknown]
  - Ovarian cancer [Unknown]
  - Fatigue [Unknown]
  - Depression [Unknown]
  - Tumour marker abnormal [Unknown]
  - Disease recurrence [Unknown]
  - Malignant neoplasm progression [Unknown]
